FAERS Safety Report 13526486 (Version 1)
Quarter: 2017Q2

REPORT INFORMATION
  Report Type: Spontaneous
  Country: US (occurrence: US)
  Receive Date: 20170508
  Receipt Date: 20170508
  Transmission Date: 20170830
  Serious: Yes (Hospitalization)
  Sender: FDA-Public Use
  Company Number: None

PATIENT
  Age: 16 Year
  Sex: Female
  Weight: 54.9 kg

DRUGS (1)
  1. INFLIXIMAB [Suspect]
     Active Substance: INFLIXIMAB
     Route: 041

REACTIONS (6)
  - Drug ineffective [None]
  - Colitis ulcerative [None]
  - Haematochezia [None]
  - Diarrhoea [None]
  - Faecal calprotectin increased [None]
  - Clostridium test positive [None]
